FAERS Safety Report 9735662 (Version 2)
Quarter: 2013Q4

REPORT INFORMATION
  Report Type: Spontaneous
  Country: IT (occurrence: IT)
  Receive Date: 20131206
  Receipt Date: 20131206
  Transmission Date: 20140711
  Serious: Yes (Hospitalization)
  Sender: FDA-Public Use
  Company Number: PHHY2013IT134683

PATIENT
  Age: 73 Year
  Sex: Male

DRUGS (3)
  1. CARBAMAZEPINE [Suspect]
     Indication: CONVULSION
     Dosage: 800 MG/DAY
  2. VALPROIC ACID [Concomitant]
     Indication: CONVULSION
     Dosage: 1000 MG, PER DAY
  3. ACE INHIBITORS [Concomitant]

REACTIONS (8)
  - Myocardial infarction [Recovered/Resolved]
  - Chest pain [Recovered/Resolved]
  - Dyspnoea [Recovered/Resolved]
  - Ventricular hypokinesia [Recovered/Resolved]
  - Electrocardiogram ST segment elevation [Recovered/Resolved]
  - Troponin T increased [Recovered/Resolved]
  - Ejection fraction decreased [Recovered/Resolved]
  - Drug ineffective [Unknown]
